FAERS Safety Report 18568350 (Version 1)
Quarter: 2020Q4

REPORT INFORMATION
  Report Type: Other
  Country: CN (occurrence: CN)
  Receive Date: 20201202
  Receipt Date: 20201202
  Transmission Date: 20210114
  Serious: Yes (Other)
  Sender: FDA-Public Use
  Company Number: CN-ROCHE-2721892

PATIENT

DRUGS (1)
  1. BEVACIZUMAB. [Suspect]
     Active Substance: BEVACIZUMAB
     Indication: NON-SMALL CELL LUNG CANCER
     Route: 042

REACTIONS (16)
  - Transaminases increased [Unknown]
  - Tumour haemorrhage [Unknown]
  - Epistaxis [Unknown]
  - Skin haemorrhage [Unknown]
  - Leukopenia [Unknown]
  - Hypertension [Unknown]
  - Activated partial thromboplastin time prolonged [Unknown]
  - Thrombocytopenia [Unknown]
  - Proteinuria [Unknown]
  - Blood bilirubin increased [Unknown]
  - Thrombosis [Unknown]
  - Gingival bleeding [Unknown]
  - Neutropenia [Unknown]
  - Haematochezia [Unknown]
  - Occult blood positive [Unknown]
  - Venous thrombosis [Unknown]
